FAERS Safety Report 7328895-2 (Version None)
Quarter: 2011Q1

REPORT INFORMATION
  Report Type: 
  Country: None (occurrence: None)
  Receive Date: 20110303
  Receipt Date: 20110223
  Transmission Date: 20110831
  Serious: Yes (Other)
  Sender: FDA-Public Use
  Company Number: JP-BAXTER-2011BH004364

PATIENT
  Age: 67 Year
  Sex: Male
  Weight: 64 kg

DRUGS (3)
  1. DIANEAL 137 W/ DEXTROSE 2.5% IN PLASTIC CONTAINER [Suspect]
     Indication: RENAL FAILURE CHRONIC
     Route: 033
     Dates: start: 20100922
  2. EXTRANEAL [Suspect]
     Indication: RENAL FAILURE CHRONIC
     Route: 033
     Dates: start: 20100922
  3. DIANEAL LOW CALCIUM W/ DEXTROSE 1.5% [Suspect]
     Indication: RENAL FAILURE CHRONIC
     Route: 033
     Dates: start: 20100922

REACTIONS (2)
  - ABDOMINAL PAIN [None]
  - ASTHENIA [None]
